FAERS Safety Report 6898509-4 (Version None)
Quarter: 2010Q3

REPORT INFORMATION
  Report Type: 
  Country: None (occurrence: None)
  Receive Date: 20100802
  Receipt Date: 20071022
  Transmission Date: 20110219
  Serious: No
  Sender: FDA-Public Use
  Company Number: US-PFIZER INC-2007087574

PATIENT
  Age: 35 Year
  Sex: Female

DRUGS (3)
  1. LYRICA [Suspect]
  2. ATIVAN [Concomitant]
  3. PERCOCET [Concomitant]

REACTIONS (3)
  - ALOPECIA [None]
  - DRUG EFFECT DECREASED [None]
  - OEDEMA PERIPHERAL [None]
